FAERS Safety Report 4327404-X (Version None)
Quarter: 2004Q1

REPORT INFORMATION
  Report Type: 
  Country: None (occurrence: None)
  Receive Date: 20040319
  Receipt Date: 20031211
  Transmission Date: 20041129
  Serious: No
  Sender: FDA-Public Use
  Company Number: US-JNJFOC-20031203022

PATIENT
  Age: 24 Year
  Sex: Female
  Weight: 68.0396 kg

DRUGS (4)
  1. ORTHO EVRA [Suspect]
     Indication: CONTRACEPTION
     Dosage: 1 DOSE(S), 3 IN 4 WEEK, TRANSDERMAL
     Route: 062
     Dates: start: 20031102
  2. ZITHROMAX [Concomitant]
  3. DOXYCYCLINE (DOXYCYLCINE) [Concomitant]
  4. CEPHALEXIN [Concomitant]

REACTIONS (5)
  - DYSFUNCTIONAL UTERINE BLEEDING [None]
  - EAR INFECTION [None]
  - PHARYNGITIS STREPTOCOCCAL [None]
  - URINARY TRACT INFECTION [None]
  - UTERINE SPASM [None]
